FAERS Safety Report 4472586-2 (Version None)
Quarter: 2004Q4

REPORT INFORMATION
  Report Type: 
  Country: None (occurrence: None)
  Receive Date: 20041008
  Receipt Date: 20040923
  Transmission Date: 20050328
  Serious: No
  Sender: FDA-Public Use
  Company Number: B01200401778

PATIENT
  Age: 63 Year
  Sex: Male

DRUGS (5)
  1. (OXALIPLATIN) - SOLUTION - 160 MG [Suspect]
     Indication: COLORECTAL CANCER METASTATIC
     Dosage: 85 MG/M2 Q2W (CUMULATIVE DOSE : 840 MG), INTRAVENOUS NOS - TIME TO ONSET : 6 WEEKS
     Route: 042
     Dates: start: 20040401, end: 20040402
  2. FLUOROURACIL [Suspect]
     Dosage: SEE IMAGE
     Route: 042
     Dates: start: 20040401, end: 20040402
  3. LEUCOVORIN CALCIUM [Suspect]
     Dosage: 200 MG/M2 Q2W (CUMULATIVE DOSE : 4300 MG), INTRAVENOUS NOS - TIME TO ONSET : 6 WEEKS
     Route: 042
     Dates: start: 20040401, end: 20040401
  4. NAVOBAN (TROPISETRON HCL) [Concomitant]
  5. DEXAMETHASONE [Concomitant]

REACTIONS (2)
  - HEPATIC LESION [None]
  - HEPATOCELLULAR DAMAGE [None]
